FAERS Safety Report 8497378 (Version 3)
Quarter: 2012Q4

REPORT INFORMATION
  Report Type: 
  Country: US (occurrence: US)
  Receive Date: 20120406
  Receipt Date: 20121019
  Transmission Date: 20130627
  Serious: Yes (Other)
  Sender: FDA-Public Use
  Company Number: US-JNJFOC-20120400828

PATIENT
  Age: 51 None
  Sex: Female
  Weight: 58.97 kg

DRUGS (5)
  1. DURAGESIC [Suspect]
     Indication: PRODUCT USED FOR UNKNOWN INDICATION
     Route: 062
  2. DURAGESIC [Suspect]
     Indication: PRODUCT USED FOR UNKNOWN INDICATION
     Route: 062
  3. DURAGESIC [Suspect]
     Indication: PAIN
     Route: 062
     Dates: start: 2007, end: 20120213
  4. DURAGESIC [Suspect]
     Indication: PAIN
     Route: 062
     Dates: start: 20120213
  5. UNSPECIFIED FENTANYL TRANSDERMAL SYSTEM [Suspect]
     Indication: PRODUCT USED FOR UNKNOWN INDICATION
     Route: 062

REACTIONS (9)
  - Surgery [Recovered/Resolved]
  - Oesophagectomy [Unknown]
  - Intestinal operation [Unknown]
  - Dyspnoea [Recovered/Resolved]
  - Eating disorder [Recovered/Resolved]
  - Pain [Not Recovered/Not Resolved]
  - Drug ineffective [Unknown]
  - Incorrect dose administered [Unknown]
  - Product quality issue [Unknown]
